FAERS Safety Report 5872058-4 (Version None)
Quarter: 2008Q3

REPORT INFORMATION
  Report Type: 
  Country: None (occurrence: None)
  Receive Date: 20080905
  Receipt Date: 20080827
  Transmission Date: 20090109
  Serious: Yes (Congenital Anomaly)
  Sender: FDA-Public Use
  Company Number: US-AMGEN-US197690

PATIENT
  Sex: Female

DRUGS (16)
  1. ENBREL [Suspect]
     Indication: RHEUMATOID ARTHRITIS
     Route: 064
     Dates: start: 20050830, end: 20060418
  2. TUMS [Concomitant]
     Route: 064
     Dates: start: 20060329, end: 20060330
  3. ASPIRIN [Concomitant]
     Route: 064
     Dates: start: 20050830, end: 20060418
  4. VITAMIN TAB [Concomitant]
     Route: 064
  5. PREDNISONE TAB [Concomitant]
     Route: 064
     Dates: start: 20050830, end: 20060418
  6. NAPROSYN [Concomitant]
     Route: 064
     Dates: start: 20050830, end: 20060418
  7. ASCORBIC ACID [Concomitant]
     Route: 064
     Dates: start: 20050830, end: 20060418
  8. AMPICILLIN [Concomitant]
     Route: 064
     Dates: start: 20051024, end: 20051031
  9. INFLUENZA VACCINE [Concomitant]
     Route: 064
     Dates: end: 20051107
  10. LOPERAMIDE HCL [Concomitant]
     Route: 064
     Dates: start: 20051118, end: 20051119
  11. PENICILLIN G [Concomitant]
     Route: 064
     Dates: start: 20060125, end: 20060130
  12. RANITIDINE [Concomitant]
     Route: 064
     Dates: start: 20050815, end: 20060418
  13. ACETAMINOPHEN [Concomitant]
     Route: 064
     Dates: start: 20060329, end: 20060331
  14. IRON [Concomitant]
     Route: 064
     Dates: start: 20050830, end: 20060418
  15. FISH OIL [Concomitant]
     Route: 064
     Dates: start: 20060201, end: 20060418
  16. CALCIUM WITH VITAMIN D [Concomitant]
     Route: 064
     Dates: start: 20051228, end: 20060418

REACTIONS (1)
  - CONGENITAL GASTRIC ANOMALY [None]
